FAERS Safety Report 11914875 (Version 1)
Quarter: 2016Q1

REPORT INFORMATION
  Report Type: Report from Study
  Country: BE (occurrence: BE)
  Receive Date: 20160113
  Receipt Date: 20160113
  Transmission Date: 20160526
  Serious: Yes (Death)
  Sender: FDA-Public Use
  Company Number: BE-ABBVIE-15P-013-1422990-00

PATIENT
  Sex: Female

DRUGS (4)
  1. DUODOPA [Suspect]
     Active Substance: CARBIDOPA\LEVODOPA
     Dosage: DOSAGE CONTINUOUSLY MONITORED AND ADJUSTED
     Route: 050
     Dates: start: 20140328, end: 20141105
  2. DUODOPA [Suspect]
     Active Substance: CARBIDOPA\LEVODOPA
     Dosage: AM DOSE=4.5ML, CD=2.9ML/H FOR 16HRS AND ED=1.9ML
     Route: 050
     Dates: start: 20150630
  3. DUODOPA [Suspect]
     Active Substance: CARBIDOPA\LEVODOPA
     Dosage: AM DOSE=4.5ML, CD=2.9ML/H FOR 16HRS AND ED=2ML
     Route: 050
     Dates: start: 20141105, end: 20150630
  4. DUODOPA [Suspect]
     Active Substance: CARBIDOPA\LEVODOPA
     Indication: PARKINSON^S DISEASE
     Dosage: AM DOSE=4.5ML, CD=2.8ML/H FOR 16HRS AND ED=1.5ML
     Route: 050
     Dates: start: 20140324, end: 20140328

REACTIONS (7)
  - General physical health deterioration [Fatal]
  - Granuloma [Not Recovered/Not Resolved]
  - Stoma site discharge [Not Recovered/Not Resolved]
  - Stoma site discharge [Unknown]
  - Stoma site pain [Unknown]
  - Hyperhidrosis [Unknown]
  - Stoma site inflammation [Unknown]
